FAERS Safety Report 5869406-8 (Version None)
Quarter: 2008Q3

REPORT INFORMATION
  Report Type: 
  Country: None (occurrence: None)
  Receive Date: 20080828
  Receipt Date: 20080818
  Transmission Date: 20090109
  Serious: Yes (Hospitalization)
  Sender: FDA-Public Use
  Company Number: GXKR2008GB07792

PATIENT
  Age: 76 Year
  Sex: Female

DRUGS (10)
  1. TRIMETHOPRIM (NGX) (TRIMETHOPRIM) UNKNOWN [Suspect]
     Indication: URINARY TRACT INFECTION
     Dosage: 200 MG, BID, ORAL
     Route: 048
  2. REPAGLINIDE [Suspect]
     Indication: DIABETES MELLITUS
     Dosage: 1 MG, TID, ORAL
     Route: 048
  3. AMLODIPINE [Concomitant]
  4. ACETYLSALICYLIC ACID SRT [Concomitant]
  5. CLOTRIMAZOLE (CLOTRIMAZOLE) UNKNOWN [Concomitant]
  6. DOXAZOSIN (DOXAZOSIN) UNKNOWN [Concomitant]
  7. ENALAPRIL (ENALAPRIL) UNKNOWN [Concomitant]
  8. FUROSEMIDE [Concomitant]
  9. METFORMIN (METFORMIN) UNKNOWN [Concomitant]
  10. TOLTERODINE (TOLTERODINE) UNKNOWN [Concomitant]

REACTIONS (2)
  - HYPERMETROPIA [None]
  - HYPOGLYCAEMIA [None]
